FAERS Safety Report 8315730 (Version 3)
Quarter: 2014Q2

REPORT INFORMATION
  Report Type: Report from Study
  Country: US (occurrence: US)
  Receive Date: 20111229
  Receipt Date: 20140423
  Transmission Date: 20141212
  Serious: Yes (Death, Hospitalization, Other)
  Sender: FDA-Public Use
  Company Number: US-MPIJNJ-2011-06563

PATIENT
  Age: 82 Year
  Sex: Male
  Weight: 74.38 kg

DRUGS (1)
  1. VELCADE [Suspect]
     Indication: PLASMA CELL MYELOMA
     Dosage: 1.3 MG/M2, 2/WEEK
     Route: 042
     Dates: start: 20110307, end: 20110418

REACTIONS (7)
  - Death [Fatal]
  - Hypoxia [Unknown]
  - Pneumonia aspiration [Recovered/Resolved]
  - Tachycardia [Unknown]
  - Renal impairment [Unknown]
  - International normalised ratio increased [Unknown]
  - Hyperkalaemia [Unknown]
